FAERS Safety Report 5134308-1 (Version None)
Quarter: 2006Q4

REPORT INFORMATION
  Report Type: 
  Country: None (occurrence: None)
  Receive Date: 20060831
  Receipt Date: 20060713
  Transmission Date: 20070319
  Serious: No
  Sender: FDA-Public Use
  Company Number: 2006-BP-07504PF

PATIENT
  Age: 61 Year
  Sex: Female
  Weight: 56.82 kg

DRUGS (8)
  1. SPIRIVA [Suspect]
     Indication: CHRONIC OBSTRUCTIVE PULMONARY DISEASE
     Dosage: 18 MCG (18 MCG,1 TIME DAILY),IH
     Dates: start: 20060501
  2. SPIRIVA [Suspect]
     Indication: RESPIRATORY DISORDER
     Dosage: 18 MCG (18 MCG,1 TIME DAILY),IH
     Dates: start: 20060501
  3. ALBUTEROL [Concomitant]
  4. AZMACORT [Concomitant]
  5. THEOPHYLLINE [Concomitant]
  6. ZOCOR [Concomitant]
  7. COZAAR [Concomitant]
  8. EXCEDRIN (MIGRAINE) [Concomitant]

REACTIONS (1)
  - DRUG INEFFECTIVE [None]
